FAERS Safety Report 5725138-8 (Version None)
Quarter: 2008Q2

REPORT INFORMATION
  Report Type: 
  Country: None (occurrence: None)
  Receive Date: 20080501
  Receipt Date: 20080421
  Transmission Date: 20081010
  Serious: Yes (Hospitalization, Other)
  Sender: FDA-Public Use
  Company Number: US-MERCK-0705USA04139

PATIENT
  Age: 66 Year
  Sex: Female

DRUGS (1)
  1. FOSAMAX [Suspect]
     Indication: OSTEOPOROSIS
     Route: 048
     Dates: start: 20040101

REACTIONS (6)
  - ARTHRALGIA [None]
  - BLOOD URINE [None]
  - GASTROINTESTINAL DISORDER [None]
  - OSTEONECROSIS [None]
  - PYREXIA [None]
  - TOOTH LOSS [None]
